FAERS Safety Report 4285615-6 (Version None)
Quarter: 2004Q1

REPORT INFORMATION
  Report Type: 
  Country: None (occurrence: None)
  Receive Date: 20040203
  Receipt Date: 20040122
  Transmission Date: 20041129
  Serious: Yes (Other)
  Sender: FDA-Public Use
  Company Number: DE-JNJFOC-20040105190

PATIENT
  Age: 72 Year
  Sex: Female

DRUGS (1)
  1. INFLIXIMAB (INFLIXIMAB, RECOMBINANT) LYOPHILIZED POWDER [Suspect]
     Indication: SARCOIDOSIS
     Dosage: 5 MG/KG, INTRAVENOUS
     Route: 042

REACTIONS (2)
  - ANTIBODY TEST POSITIVE [None]
  - ANTIPHOSPHOLIPID SYNDROME [None]
